FAERS Safety Report 13738484 (Version 1)
Quarter: 2017Q3

REPORT INFORMATION
  Report Type: Report from Study
  Country: US (occurrence: US)
  Receive Date: 20170710
  Receipt Date: 20170710
  Transmission Date: 20171127
  Serious: No
  Sender: FDA-Public Use
  Company Number: US-SAOL THERAPEUTICS-2016SAO01046

PATIENT
  Age: 69 Year
  Sex: Male

DRUGS (4)
  1. LIORESAL [Suspect]
     Active Substance: BACLOFEN
     Route: 037
  2. BUPIVACAINE. [Suspect]
     Active Substance: BUPIVACAINE
     Dosage: 0.0752 MG,\DAY
     Route: 037
  3. MORPHINE [Suspect]
     Active Substance: MORPHINE
     Dosage: 0.0752 MG,\DAY
     Route: 037
     Dates: start: 20161017, end: 20161026
  4. SALINE [Suspect]
     Active Substance: SODIUM CHLORIDE
     Dosage: 0.0481 MG, \DAY
     Route: 037
     Dates: start: 20161026

REACTIONS (3)
  - Back pain [Recovered/Resolved]
  - Fall [Recovered/Resolved]
  - Device failure [Recovered/Resolved]

NARRATIVE: CASE EVENT DATE: 20161026
